FAERS Safety Report 7133411-4 (Version None)
Quarter: 2010Q4

REPORT INFORMATION
  Report Type: 
  Country: None (occurrence: None)
  Receive Date: 20101202
  Receipt Date: 20101126
  Transmission Date: 20110411
  Serious: Yes (Hospitalization)
  Sender: FDA-Public Use
  Company Number: DE-CEPHALON-2010006179

PATIENT
  Sex: Male

DRUGS (1)
  1. ACTIQ [Suspect]
     Indication: LUNG DISORDER
     Route: 002
     Dates: start: 20080101

REACTIONS (2)
  - ADVERSE EVENT [None]
  - OVERDOSE [None]
